FAERS Safety Report 9449738 (Version 2)
Quarter: 2014Q2

REPORT INFORMATION
  Report Type: Spontaneous
  Country: IT (occurrence: IT)
  Receive Date: 20130809
  Receipt Date: 20140421
  Transmission Date: 20141212
  Serious: Yes (Disabling)
  Sender: FDA-Public Use
  Company Number: IT-ROCHE-1259638

PATIENT
  Age: 60 Year
  Sex: Female

DRUGS (13)
  1. BONDRONAT [Suspect]
     Indication: BREAST CANCER
     Route: 048
     Dates: start: 20111103, end: 20120601
  2. ZOMETA [Suspect]
     Indication: BREAST CANCER
     Route: 042
     Dates: start: 20120621, end: 20130516
  3. FEMARA [Concomitant]
     Route: 065
     Dates: start: 201111, end: 201206
  4. XELODA [Concomitant]
     Route: 065
     Dates: start: 20120622, end: 201306
  5. TYVERB [Concomitant]
     Route: 065
  6. GLUCOBAY 50 [Concomitant]
     Route: 065
  7. NOVONORM [Concomitant]
     Route: 065
  8. EUTIROX [Concomitant]
     Route: 065
  9. MELATONIN [Concomitant]
     Route: 065
  10. COENZYME Q-10 [Concomitant]
     Route: 065
  11. VISCUM ALBUM [Concomitant]
  12. VITAMIN C [Concomitant]
     Route: 065
  13. HERCEPTIN [Concomitant]
     Dosage: 10 CYCLES
     Route: 065
     Dates: start: 20111101, end: 20120517

REACTIONS (1)
  - Osteonecrosis [Not Recovered/Not Resolved]
